FAERS Safety Report 5069513-6 (Version None)
Quarter: 2006Q3

REPORT INFORMATION
  Report Type: 
  Country: None (occurrence: None)
  Receive Date: 20060803
  Receipt Date: 20060524
  Transmission Date: 20061208
  Serious: Yes (Other)
  Sender: FDA-Public Use
  Company Number: US-BAYER-200612200BCC

PATIENT
  Age: 55 Year
  Sex: Female
  Weight: 75 kg

DRUGS (10)
  1. ASPIRIN [Suspect]
     Indication: FIBROMYALGIA
     Dosage: TOTAL DAILY DOSE: 3900 MG  UNIT DOSE: 325 MG
     Route: 048
     Dates: start: 19810101, end: 20051001
  2. ASPIRIN [Suspect]
     Dosage: TOTAL DAILY DOSE: 650 MG  UNIT DOSE: 325 MG
     Route: 048
     Dates: start: 19810101
  3. ASPIRIN [Suspect]
     Indication: DRUG USE FOR UNKNOWN INDICATION
     Dosage: TOTAL DAILY DOSE: 81 MG  UNIT DOSE: 81 MG
     Route: 048
     Dates: start: 20051201
  4. NEXAVAR [Suspect]
     Indication: RENAL CELL CARCINOMA STAGE UNSPECIFIED
     Dosage: TOTAL DAILY DOSE: 800 MG  UNIT DOSE: 400 MG
     Route: 048
     Dates: start: 20060510, end: 20060515
  5. PAZOPANIB [Suspect]
  6. MAXZIDE [Concomitant]
  7. NORVASC [Concomitant]
  8. LASIX [Concomitant]
  9. NEXIUM [Concomitant]
     Dates: end: 20060401
  10. POTASSIUM CHLORIDE [Concomitant]

REACTIONS (12)
  - BLOOD PRESSURE INCREASED [None]
  - DEAFNESS [None]
  - GAIT DISTURBANCE [None]
  - LIVER FUNCTION TEST ABNORMAL [None]
  - METASTASES TO LUNG [None]
  - MUSCLE SPASMS [None]
  - PALMAR-PLANTAR ERYTHRODYSAESTHESIA SYNDROME [None]
  - RASH GENERALISED [None]
  - RENAL CELL CARCINOMA STAGE UNSPECIFIED [None]
  - RENAL FUNCTION TEST ABNORMAL [None]
  - TINNITUS [None]
  - WEIGHT INCREASED [None]
